FAERS Safety Report 7197094-X (Version None)
Quarter: 2010Q4

REPORT INFORMATION
  Report Type: 
  Country: None (occurrence: None)
  Receive Date: 20101224
  Receipt Date: 20101216
  Transmission Date: 20110411
  Serious: Yes (Death)
  Sender: FDA-Public Use
  Company Number: JP-BRISTOL-MYERS SQUIBB COMPANY-15456395

PATIENT
  Age: 28 Year
  Sex: Female

DRUGS (8)
  1. ABILIFY [Suspect]
     Indication: SCHIZOPHRENIA
     Dosage: 16JAN2008-18JAN2008:6MG/DAY, 19JAN2008:18MG/DAY, 20JAN2008-15FEB2008:24MG/DAY/27DAYS
     Route: 048
     Dates: start: 20080116, end: 20080215
  2. SERENACE [Suspect]
     Route: 048
     Dates: start: 20080215
  3. RHYTHMY [Concomitant]
     Dosage: RHYTHMY TABS
     Dates: start: 20080120
  4. EURODIN [Concomitant]
     Dates: start: 20080201
  5. RESTAS [Concomitant]
     Dosage: TAB
     Dates: start: 20080201
  6. AKINETON [Concomitant]
     Dosage: AKINETON TAB
     Dates: start: 20080201
  7. TRIHEXYPHENIDYL HCL [Concomitant]
     Indication: PARKINSON'S DISEASE
     Dosage: TRIHEXYPHENIDYL HCL TAB
     Dates: start: 20080210
  8. VEGETAMIN A [Concomitant]
     Dates: start: 20080215

REACTIONS (7)
  - ABNORMAL BEHAVIOUR [None]
  - AKATHISIA [None]
  - DYSARTHRIA [None]
  - INSOMNIA [None]
  - MALAISE [None]
  - PARKINSONISM [None]
  - PULMONARY EMBOLISM [None]
